FAERS Safety Report 22227860 (Version 1)
Quarter: 2023Q2

REPORT INFORMATION
  Report Type: Spontaneous
  Country: US (occurrence: US)
  Receive Date: 20230419
  Receipt Date: 20230419
  Transmission Date: 20230721
  Serious: No
  Sender: FDA-Public Use
  Company Number: US-BIOGEN-2022BI01123816

PATIENT
  Sex: Female

DRUGS (1)
  1. TYSABRI [Suspect]
     Active Substance: NATALIZUMAB
     Indication: Multiple sclerosis
     Dosage: 300 MILLIGRAM/MILLILITER, INFUSED FOR OVER 1 HOUR
     Route: 050
     Dates: start: 20211111

REACTIONS (6)
  - Procedural pain [Not Recovered/Not Resolved]
  - Illness [Unknown]
  - Tension [Unknown]
  - Cognitive disorder [Unknown]
  - Asthenia [Unknown]
  - Anxiety [Unknown]
